FAERS Safety Report 8371586-X (Version None)
Quarter: 2012Q2

REPORT INFORMATION
  Report Type: 
  Country: None (occurrence: None)
  Receive Date: 20120518
  Receipt Date: 20120509
  Transmission Date: 20120825
  Serious: Yes (Hospitalization, Other)
  Sender: FDA-Public Use
  Company Number: US-ASTRAZENECA-2012SE29803

PATIENT
  Age: 61 Year
  Sex: Male
  Weight: 105.7 kg

DRUGS (2)
  1. BRILINTA [Suspect]
     Indication: CARDIOVASCULAR DISORDER
     Route: 048
     Dates: start: 20120201
  2. LOPRESSOR [Concomitant]
     Indication: BLOOD PRESSURE ABNORMAL

REACTIONS (9)
  - COGNITIVE DISORDER [None]
  - DIABETES MELLITUS [None]
  - CARDIAC DISORDER [None]
  - DYSPNOEA [None]
  - MYOCARDIAL INFARCTION [None]
  - CEREBROVASCULAR ACCIDENT [None]
  - BLOOD GLUCOSE INCREASED [None]
  - CORONARY ARTERY OCCLUSION [None]
  - INTENTIONAL DRUG MISUSE [None]
